FAERS Safety Report 6466926-2 (Version None)
Quarter: 2009Q4

REPORT INFORMATION
  Report Type: 
  Country: None (occurrence: None)
  Receive Date: 20091202
  Receipt Date: 20091124
  Transmission Date: 20100525
  Serious: Yes (Hospitalization)
  Sender: FDA-Public Use
  Company Number: AU-PFIZER INC-2009302260

PATIENT
  Age: 67 Year
  Sex: Female

DRUGS (1)
  1. SUTENT [Suspect]
     Indication: MESOTHELIOMA
     Dosage: 50 MG, UNK

REACTIONS (3)
  - FATIGUE [None]
  - PNEUMONITIS [None]
  - STOMATITIS [None]
